FAERS Safety Report 12597801 (Version 2)
Quarter: 2016Q3

REPORT INFORMATION
  Report Type: Spontaneous
  Country: US (occurrence: US)
  Receive Date: 20160727
  Receipt Date: 20160921
  Transmission Date: 20161109
  Serious: No
  Sender: FDA-Public Use
  Company Number: US-ASTRAZENECA-2016SE70877

PATIENT
  Age: 20450 Day
  Sex: Male
  Weight: 83.9 kg

DRUGS (4)
  1. ADVAIR HFA [Concomitant]
     Active Substance: FLUTICASONE PROPIONATE\SALMETEROL XINAFOATE
     Indication: ASTHMA
     Route: 055
  2. VENTOLIN RESCUE INHALER [Concomitant]
     Indication: RESPIRATORY DISORDER
     Route: 055
  3. PULMICORT FLEXHALER [Suspect]
     Active Substance: BUDESONIDE
     Indication: ASTHMA
     Route: 055
  4. PULMICORT FLEXHALER [Suspect]
     Active Substance: BUDESONIDE
     Indication: ASTHMA
     Route: 055
     Dates: start: 20160622

REACTIONS (3)
  - Chest discomfort [Unknown]
  - Intentional product misuse [Unknown]
  - Device issue [Unknown]

NARRATIVE: CASE EVENT DATE: 20160622
